FAERS Safety Report 12232980 (Version 1)
Quarter: 2016Q2

REPORT INFORMATION
  Report Type: Spontaneous
  Country: US (occurrence: US)
  Receive Date: 20160403
  Receipt Date: 20160403
  Transmission Date: 20160815
  Serious: Yes (Hospitalization)
  Sender: FDA-Public Use
  Company Number: US-BIOGEN-2016BI00213669

PATIENT
  Age: 44 Year
  Sex: Female

DRUGS (1)
  1. TYSABRI [Suspect]
     Active Substance: NATALIZUMAB
     Indication: MULTIPLE SCLEROSIS
     Route: 065
     Dates: start: 20151214

REACTIONS (6)
  - Pharyngitis [Unknown]
  - Toothache [Unknown]
  - Skin infection [Unknown]
  - Rhinitis [Unknown]
  - Facial pain [Unknown]
  - Oral infection [Unknown]

NARRATIVE: CASE EVENT DATE: 20151216
